FAERS Safety Report 15130744 (Version 1)
Quarter: 2018Q3

REPORT INFORMATION
  Report Type: Spontaneous
  Country: US (occurrence: US)
  Receive Date: 20180615
  Receipt Date: 20180615
  Transmission Date: 20181010
  Serious: Yes (Other)
  Sender: FDA-Public Use
  Company Number: None

PATIENT
  Age: 69 Year
  Sex: Female

DRUGS (3)
  1. ESOMEPRAZOLE 40 [Concomitant]
     Active Substance: ESOMEPRAZOLE
     Dates: start: 20110611, end: 20180209
  2. ESOMEPRAZOLE 40 [Concomitant]
     Active Substance: ESOMEPRAZOLE
     Dates: start: 20180504, end: 20180615
  3. ESOMEPRAZOLE MAGNESIUM. [Suspect]
     Active Substance: ESOMEPRAZOLE MAGNESIUM
     Indication: GASTROOESOPHAGEAL REFLUX DISEASE
     Route: 048
     Dates: start: 20171111, end: 20180209

REACTIONS (1)
  - Drug ineffective [None]

NARRATIVE: CASE EVENT DATE: 20180615
